FAERS Safety Report 24974239 (Version 1)
Quarter: 2025Q1

REPORT INFORMATION
  Report Type: Spontaneous
  Country: BR (occurrence: BR)
  Receive Date: 20250217
  Receipt Date: 20250217
  Transmission Date: 20250409
  Serious: Yes (Hospitalization)
  Sender: NOVO NORDISK
  Company Number: BR-NOVOPROD-1366500

PATIENT
  Sex: Female

DRUGS (1)
  1. OZEMPIC [Suspect]
     Active Substance: SEMAGLUTIDE
     Indication: Weight control

REACTIONS (5)
  - Optic nerve disorder [Not Recovered/Not Resolved]
  - Dizziness [Recovered/Resolved]
  - Gastritis [Recovered/Resolved]
  - Product use in unapproved indication [Recovered/Resolved]
  - Prescription drug used without a prescription [Recovered/Resolved]
